FAERS Safety Report 4902477-1 (Version None)
Quarter: 2006Q1

REPORT INFORMATION
  Report Type: 
  Country: None (occurrence: None)
  Receive Date: 20060202
  Receipt Date: 20060131
  Transmission Date: 20060701
  Serious: Yes (Death, Hospitalization)
  Sender: FDA-Public Use
  Company Number: TCI2002A04344

PATIENT
  Age: 76 Year
  Sex: Female

DRUGS (5)
  1. LANSOPRAZOLE [Suspect]
     Indication: REFLUX OESOPHAGITIS
     Dosage: 15 MG (15 MG, 1 IN 1 D) PER ORAL
     Route: 048
     Dates: start: 20021129, end: 20021214
  2. PREDNISOLONE [Concomitant]
  3. ALFAROL (ALFACALCIDOL) (CAPSULES) [Concomitant]
  4. CLINORIL [Concomitant]
  5. ASPARA-CA (ASPARTATE CALCIUM) (TABLETS) [Concomitant]

REACTIONS (22)
  - ABDOMINAL DISTENSION [None]
  - ACUTE RESPIRATORY FAILURE [None]
  - ANOREXIA [None]
  - ASCITES [None]
  - ASPIRATION [None]
  - BONE MARROW FAILURE [None]
  - COMA [None]
  - DISEASE PROGRESSION [None]
  - ENTEROCOCCAL INFECTION [None]
  - GASTROENTERITIS BACTERIAL [None]
  - GENERAL PHYSICAL HEALTH DETERIORATION [None]
  - HEPATIC CIRRHOSIS [None]
  - JAUNDICE [None]
  - MUCOSAL ULCERATION [None]
  - PANCYTOPENIA [None]
  - PERITONITIS [None]
  - PORTAL HYPERTENSION [None]
  - PROTEIN TOTAL DECREASED [None]
  - PYREXIA [None]
  - REFLUX OESOPHAGITIS [None]
  - SEPSIS [None]
  - THERAPY NON-RESPONDER [None]
